FAERS Safety Report 9325504 (Version 1)
Quarter: 2013Q2

REPORT INFORMATION
  Report Type: Spontaneous
  Country: US (occurrence: None)
  Receive Date: 20130528
  Receipt Date: 20130528
  Transmission Date: 20140414
  Serious: Yes (Hospitalization)
  Sender: FDA-Public Use
  Company Number: USA/USA/13/0029641

PATIENT
  Age: 67 Year
  Sex: Female

DRUGS (6)
  1. ZIPRASIDONE [Suspect]
     Indication: BIPOLAR DISORDER
  2. VENLAFAXINE [Suspect]
     Indication: DEPRESSION
  3. QUETIAPINE [Suspect]
     Indication: BIPOLAR II DISORDER
  4. SERTRALINE (SERTRALINE) [Suspect]
     Indication: DEPRESSION
  5. LITHIUM [Concomitant]
  6. VALPROATE (VALPROATE SODIUM) [Concomitant]

REACTIONS (12)
  - Akathisia [None]
  - Suicidal ideation [None]
  - Depression [None]
  - Psychomotor hyperactivity [None]
  - Speech disorder [None]
  - Grandiosity [None]
  - Somnolence [None]
  - Pressure of speech [None]
  - Sedation [None]
  - Unemployment [None]
  - Agitation [None]
  - Orthostatic hypotension [None]
